FAERS Safety Report 17776565 (Version 4)
Quarter: 2020Q3

REPORT INFORMATION
  Report Type: Report from Study
  Country: US (occurrence: US)
  Receive Date: 20200513
  Receipt Date: 20200724
  Transmission Date: 20201102
  Serious: Yes (Other)
  Sender: FDA-Public Use
  Company Number: US-PFIZER INC-2020176764

PATIENT

DRUGS (2)
  1. DEPO?MEDROL [Suspect]
     Active Substance: METHYLPREDNISOLONE ACETATE
     Dosage: 1 ML DEPOMEDROL (80 MG) APPLIED DIRECTLY TO THE SURGICAL SITE BY USING A GELFOAM CARRIER
  2. GELFOAM [Suspect]
     Active Substance: GELATIN\THROMBIN HUMAN
     Dosage: 10?CM2 GELFOAM CARRIER

REACTIONS (1)
  - Wound infection [Recovered/Resolved]
